FAERS Safety Report 4485187-7 (Version None)
Quarter: 2004Q4

REPORT INFORMATION
  Report Type: 
  Country: None (occurrence: None)
  Receive Date: 20041026
  Receipt Date: 20040312
  Transmission Date: 20050328
  Serious: No
  Sender: FDA-Public Use
  Company Number: US-BRISTOL-MYERS SQUIBB COMPANY-12531562

PATIENT
  Age: 74 Year
  Sex: Female
  Weight: 82 kg

DRUGS (4)
  1. GLUCOPHAGE XR [Suspect]
     Indication: DIABETES MELLITUS
     Route: 048
  2. LOTENSIN [Concomitant]
     Dosage: DURATION OF THERAPY:  ^5-6 YEARS^
  3. QUININE SULFATE [Concomitant]
     Dosage: TAKEN ^RARELY^
  4. ADVIL [Concomitant]
     Dosage: TAKEN ^RARELY^

REACTIONS (1)
  - BLOOD GLUCOSE INCREASED [None]
